FAERS Safety Report 25872351 (Version 1)
Quarter: 2025Q4

REPORT INFORMATION
  Report Type: Spontaneous
  Country: CA (occurrence: CA)
  Receive Date: 20251002
  Receipt Date: 20251002
  Transmission Date: 20260118
  Serious: Yes (Other)
  Sender: CELLTRION
  Company Number: CA-CELLTRION INC.-2025CA034942

PATIENT

DRUGS (1)
  1. INFLIXIMAB [Suspect]
     Active Substance: INFLIXIMAB
     Indication: Crohn^s disease
     Dosage: 500 MILLIGRAM EVERY 6 WEEKS (MAINTENANCE)
     Route: 042
     Dates: start: 20250702

REACTIONS (3)
  - Acrochordon [Recovering/Resolving]
  - Overdose [Unknown]
  - Intentional product use issue [Unknown]
